FAERS Safety Report 15264566 (Version 1)
Quarter: 2018Q3

REPORT INFORMATION
  Report Type: Spontaneous
  Country: US (occurrence: US)
  Receive Date: 20180720
  Receipt Date: 20180720
  Transmission Date: 20181010
  Serious: Yes (Disabling)
  Sender: FDA-Public Use
  Company Number: None

PATIENT
  Age: 49 Year
  Sex: Female
  Weight: 102.2 kg

DRUGS (15)
  1. LISINOPRIL. [Concomitant]
     Active Substance: LISINOPRIL
  2. DULOXETINE. [Suspect]
     Active Substance: DULOXETINE
     Indication: DEPRESSION
     Dosage: ?          QUANTITY:30 DF DOSAGE FORM;?
     Route: 048
     Dates: start: 20180720, end: 20180720
  3. DULOXETINE. [Suspect]
     Active Substance: DULOXETINE
     Indication: ANXIETY
  4. SIMVASTATIN. [Concomitant]
     Active Substance: SIMVASTATIN
  5. HERBAL HORMONE FORMULA [Concomitant]
  6. PRILOSEC [Concomitant]
     Active Substance: OMEPRAZOLE MAGNESIUM
  7. ZYRTEC [Concomitant]
     Active Substance: CETIRIZINE HYDROCHLORIDE
  8. VITAMIN E [Concomitant]
     Active Substance: .ALPHA.-TOCOPHEROL
  9. FENOFIBRATE. [Concomitant]
     Active Substance: FENOFIBRATE
  10. METFORMIN [Concomitant]
     Active Substance: METFORMIN HYDROCHLORIDE
  11. VIT. D [Concomitant]
  12. ZANTAC [Concomitant]
     Active Substance: RANITIDINE HYDROCHLORIDE
  13. ZOLOFT [Concomitant]
     Active Substance: SERTRALINE HYDROCHLORIDE
  14. IRON [Concomitant]
     Active Substance: IRON
  15. TYLENOL [Concomitant]
     Active Substance: ACETAMINOPHEN

REACTIONS (11)
  - Somnolence [None]
  - Mydriasis [None]
  - Visual impairment [None]
  - Hypokinesia [None]
  - Blood pressure systolic increased [None]
  - Thirst [None]
  - Dyspepsia [None]
  - Feeling abnormal [None]
  - Decreased appetite [None]
  - Fatigue [None]
  - Cyanosis [None]

NARRATIVE: CASE EVENT DATE: 20180720
